FAERS Safety Report 5812030-3 (Version None)
Quarter: 2008Q3

REPORT INFORMATION
  Report Type: 
  Country: None (occurrence: None)
  Receive Date: 20080716
  Receipt Date: 20080707
  Transmission Date: 20090109
  Serious: Yes (Hospitalization)
  Sender: FDA-Public Use
  Company Number: PHHY2008NO13369

PATIENT
  Sex: Female

DRUGS (3)
  1. ESIDRIX [Suspect]
  2. INFLUENZA VACCINE [Suspect]
     Dosage: UNK
     Dates: start: 19951016, end: 19951016
  3. MODURETIC 5-50 [Concomitant]
     Dosage: 1 DAILY

REACTIONS (3)
  - DEAFNESS [None]
  - DIZZINESS [None]
  - NAUSEA [None]
